FAERS Safety Report 4621672-2 (Version None)
Quarter: 2005Q1

REPORT INFORMATION
  Report Type: 
  Country: None (occurrence: None)
  Receive Date: 20050328
  Receipt Date: 20050317
  Transmission Date: 20050727
  Serious: Yes (Other)
  Sender: FDA-Public Use
  Company Number: 2005035836

PATIENT
  Age: 65 Year
  Sex: Female
  Weight: 65.7716 kg

DRUGS (12)
  1. CELEBREX [Suspect]
     Indication: FIBROMYALGIA
     Dosage: 100 MG (100 MG, 1 IN 1 D), ORAL
     Route: 048
     Dates: end: 20040101
  2. BEXTRA [Suspect]
     Indication: FIBROMYALGIA
     Dosage: 20 MG (20 MG, 1 IN 1 D), ORAL
     Route: 048
     Dates: start: 20040101, end: 20050201
  3. PAROXETINE HCL [Concomitant]
  4. DILTIAZEM HYDROCHLORIDE [Concomitant]
  5. ATENOLOL [Concomitant]
  6. HYDROCHLOROTHIAZIDE [Concomitant]
  7. THYROID TAB [Concomitant]
  8. CYCLOBENZAPRINE HYDROCHLORIDE [Concomitant]
  9. ALPRAZOLAM [Concomitant]
  10. TOCOPHEROL (TOCOPHEROL) [Concomitant]
  11. VITAMIN B (VITAMIN B) [Concomitant]
  12. ASCORBIC ACID [Concomitant]

REACTIONS (7)
  - ATRIOVENTRICULAR BLOCK [None]
  - CORONARY ARTERY OCCLUSION [None]
  - DRUG INEFFECTIVE [None]
  - ELECTROCARDIOGRAM ABNORMAL [None]
  - GASTRIC OPERATION [None]
  - OXYGEN CONSUMPTION DECREASED [None]
  - PAIN [None]
